FAERS Safety Report 25012853 (Version 1)
Quarter: 2025Q1

REPORT INFORMATION
  Report Type: Spontaneous
  Country: IN (occurrence: IN)
  Receive Date: 20250226
  Receipt Date: 20250226
  Transmission Date: 20250409
  Serious: Yes (Death)
  Sender: MYLAN
  Company Number: IN-MYLANLABS-2025M1016553

PATIENT
  Age: 57 Year
  Sex: Male

DRUGS (2)
  1. LENALIDOMIDE [Suspect]
     Active Substance: LENALIDOMIDE
     Indication: Myelodysplastic syndrome with multilineage dysplasia
  2. ELTROMBOPAG [Suspect]
     Active Substance: ELTROMBOPAG
     Indication: Myelodysplastic syndrome with multilineage dysplasia

REACTIONS (2)
  - Drug ineffective [Fatal]
  - Disease progression [Fatal]
